FAERS Safety Report 6128695-5 (Version None)
Quarter: 2009Q1

REPORT INFORMATION
  Report Type: 
  Country: None (occurrence: None)
  Receive Date: 20090323
  Receipt Date: 20090311
  Transmission Date: 20090719
  Serious: Yes (Life-Threatening, Other)
  Sender: FDA-Public Use
  Company Number: CN-PFIZER INC-2009175301

PATIENT

DRUGS (3)
  1. DIFLUCAN [Suspect]
     Indication: FUNGAL INFECTION
     Dosage: UNIT DOSE: 0.2
     Route: 042
     Dates: start: 20090216, end: 20090218
  2. SULPERAZON [Concomitant]
     Route: 042
     Dates: start: 20090101, end: 20090101
  3. TEICOPLANIN [Concomitant]
     Route: 042
     Dates: start: 20090101, end: 20090101

REACTIONS (2)
  - CARDIAC FAILURE [None]
  - DERMATITIS EXFOLIATIVE [None]
